FAERS Safety Report 16779752 (Version 1)
Quarter: 2019Q3

REPORT INFORMATION
  Report Type: Spontaneous
  Country: SE (occurrence: SE)
  Receive Date: 20190906
  Receipt Date: 20190906
  Transmission Date: 20191005
  Serious: Yes (Hospitalization)
  Sender: FDA-Public Use
  Company Number: SE-ACCORD-153982

PATIENT
  Age: 17 Year
  Sex: Female

DRUGS (3)
  1. LERGIGAN (PROMETHAZINE) [Suspect]
     Active Substance: PROMETHAZINE HYDROCHLORIDE
     Indication: PRODUCT USED FOR UNKNOWN INDICATION
     Dosage: ENTER 100 OR 200X25 MG, AS WELL AS  RECENTLY RETRIEVED EMPTY PACKAGES NOW
     Route: 048
     Dates: start: 20190523, end: 20190523
  2. SERTRALINE [Suspect]
     Active Substance: SERTRALINE HYDROCHLORIDE
     Indication: PRODUCT USED FOR UNKNOWN INDICATION
     Dosage: ENTER 100 OR 200X25 OR 50 MG, AS WELL AS RECENTLY RETRIEVED EMPTY?PACKAGES NOW
     Route: 048
     Dates: start: 20190523, end: 20190523
  3. WARAN [Suspect]
     Active Substance: WARFARIN SODIUM
     Indication: PRODUCT USED FOR UNKNOWN INDICATION
     Dosage: 4 PIECES
     Route: 048
     Dates: start: 20190523, end: 20190523

REACTIONS (4)
  - Intentional self-injury [Unknown]
  - Hyperreflexia [Unknown]
  - Intentional overdose [Unknown]
  - Myoclonus [Unknown]

NARRATIVE: CASE EVENT DATE: 201905
